FAERS Safety Report 17906607 (Version 2)
Quarter: 2021Q2

REPORT INFORMATION
  Report Type: Spontaneous
  Country: US (occurrence: US)
  Receive Date: 20200616
  Receipt Date: 20210617
  Transmission Date: 20210717
  Serious: No
  Sender: FDA-Public Use
  Company Number: US-ROCHE-2565322

PATIENT
  Age: 59 Year
  Sex: Female

DRUGS (7)
  1. WELLBUTRIN [Concomitant]
     Active Substance: BUPROPION HYDROCHLORIDE
     Dosage: YES
  2. HYDROCODONE [Concomitant]
     Active Substance: HYDROCODONE
     Dosage: YES
  3. ACTEMRA [Suspect]
     Active Substance: TOCILIZUMAB
  4. ACTEMRA [Suspect]
     Active Substance: TOCILIZUMAB
  5. IBUPROFEN. [Concomitant]
     Active Substance: IBUPROFEN
     Dosage: YES
  6. ARAVA [Concomitant]
     Active Substance: LEFLUNOMIDE
     Dosage: YES
  7. ACTEMRA [Suspect]
     Active Substance: TOCILIZUMAB
     Indication: RHEUMATOID ARTHRITIS
     Dosage: 162MG/0.9M PFS
     Route: 058
     Dates: start: 201811

REACTIONS (3)
  - Needle issue [Unknown]
  - No adverse event [Unknown]
  - Product dose omission issue [Unknown]

NARRATIVE: CASE EVENT DATE: 20200227
